FAERS Safety Report 19434158 (Version 1)
Quarter: 2021Q2

REPORT INFORMATION
  Report Type: Spontaneous
  Country: US (occurrence: US)
  Receive Date: 20210617
  Receipt Date: 20210617
  Transmission Date: 20210717
  Serious: No
  Sender: FDA-Public Use
  Company Number: US-ROCHE-2574639

PATIENT
  Sex: Male
  Weight: 124.4 kg

DRUGS (9)
  1. PREDNISONE. [Concomitant]
     Active Substance: PREDNISONE
  2. ASPIRIN. [Concomitant]
     Active Substance: ASPIRIN
     Indication: ISCHAEMIC HEART DISEASE PROPHYLAXIS
  3. TRAMADOL. [Concomitant]
     Active Substance: TRAMADOL
     Indication: POLYMYALGIA RHEUMATICA
     Dosage: 3 A DAY ;ONGOING: NO
  4. ACTEMRA [Suspect]
     Active Substance: TOCILIZUMAB
     Indication: GIANT CELL ARTERITIS
     Route: 058
  5. LISINOPRIL. [Concomitant]
     Active Substance: LISINOPRIL
     Indication: HYPERTENSION
  6. TRICOR [Concomitant]
     Active Substance: FENOFIBRATE
     Indication: BLOOD TRIGLYCERIDES INCREASED
  7. ZOCOR [Concomitant]
     Active Substance: SIMVASTATIN
     Indication: BLOOD CHOLESTEROL INCREASED
  8. KEVZARA [Suspect]
     Active Substance: SARILUMAB
     Indication: GIANT CELL ARTERITIS
     Route: 065
  9. CELEBREX [Concomitant]
     Active Substance: CELECOXIB
     Indication: RHEUMATOID ARTHRITIS

REACTIONS (11)
  - Weight increased [Unknown]
  - Blood cholesterol increased [Unknown]
  - Amnesia [Unknown]
  - Polymyalgia rheumatica [Recovered/Resolved]
  - Hypertension [Unknown]
  - Alopecia [Unknown]
  - Dyspnoea [Unknown]
  - Mobility decreased [Unknown]
  - Blood triglycerides increased [Unknown]
  - Stomatitis [Unknown]
  - Skin ulcer [Unknown]
